FAERS Safety Report 9096325 (Version 1)
Quarter: 2013Q1

REPORT INFORMATION
  Report Type: Spontaneous
  Country: IT (occurrence: IT)
  Receive Date: 20130207
  Receipt Date: 20130207
  Transmission Date: 20140127
  Serious: Yes (Other)
  Sender: FDA-Public Use
  Company Number: IT-ROCHE-1187939

PATIENT
  Age: 35 Year
  Sex: Male

DRUGS (3)
  1. RIVOTRIL [Suspect]
     Indication: POISONING
     Route: 048
     Dates: start: 20130121, end: 20130121
  2. METHADONE HYDROCHLORIDE [Suspect]
     Indication: POISONING
     Route: 065
     Dates: start: 20130121, end: 20130121
  3. ALCOHOL [Concomitant]

REACTIONS (1)
  - Slow speech [Recovering/Resolving]
